FAERS Safety Report 13277203 (Version 1)
Quarter: 2017Q1

REPORT INFORMATION
  Report Type: Report from Study
  Country: BR (occurrence: BR)
  Receive Date: 20170228
  Receipt Date: 20170228
  Transmission Date: 20170428
  Serious: Yes (Other)
  Sender: FDA-Public Use
  Company Number: PHHY2017BR030347

PATIENT
  Age: 86 Year
  Sex: Female

DRUGS (2)
  1. EXELON PATCH [Suspect]
     Active Substance: RIVASTIGMINE
     Dosage: 9.5 MG, PATCH (10 CM2), 1 YEAR AGO
     Route: 062
  2. EXELON PATCH [Suspect]
     Active Substance: RIVASTIGMINE
     Indication: PRODUCT USED FOR UNKNOWN INDICATION
     Dosage: 4.6 MG, PATCH (5 CM2)
     Route: 062

REACTIONS (7)
  - Drug ineffective [Unknown]
  - Hand fracture [Not Recovered/Not Resolved]
  - Muscular weakness [Unknown]
  - Confusional state [Unknown]
  - General physical health deterioration [Unknown]
  - Tendon rupture [Not Recovered/Not Resolved]
  - Retching [Unknown]
